FAERS Safety Report 4560238-X (Version None)
Quarter: 2005Q1

REPORT INFORMATION
  Report Type: 
  Country: None (occurrence: None)
  Receive Date: 20050125
  Receipt Date: 20050114
  Transmission Date: 20050727
  Serious: Yes (Life-Threatening, Hospitalization)
  Sender: FDA-Public Use
  Company Number: FR-JNJFOC-20041206697

PATIENT
  Age: 35 Year
  Sex: Female
  Weight: 90 kg

DRUGS (3)
  1. RISPERDAL [Suspect]
     Indication: DRUG USE FOR UNKNOWN INDICATION
     Route: 049
  2. DIAMICRON [Suspect]
     Indication: DRUG USE FOR UNKNOWN INDICATION
     Route: 049
  3. DEPAKOTE [Suspect]
     Indication: DRUG USE FOR UNKNOWN INDICATION
     Route: 049

REACTIONS (9)
  - CYTOLYTIC HEPATITIS [None]
  - DRUG RASH WITH EOSINOPHILIA AND SYSTEMIC SYMPTOMS [None]
  - FACE OEDEMA [None]
  - HEPATITIS [None]
  - HYPERSENSITIVITY [None]
  - HYPOTENSION [None]
  - LIVER DISORDER [None]
  - OLIGURIA [None]
  - PULMONARY OEDEMA [None]
